FAERS Safety Report 17374117 (Version 1)
Quarter: 2020Q1

REPORT INFORMATION
  Report Type: Spontaneous
  Country: FR (occurrence: FR)
  Receive Date: 20200206
  Receipt Date: 20200206
  Transmission Date: 20200409
  Serious: Yes (Hospitalization)
  Sender: FDA-Public Use
  Company Number: FR-TEVA-2020-FR-1181484

PATIENT
  Age: 52 Year
  Sex: Male
  Weight: 135.5 kg

DRUGS (3)
  1. SEREVENT DISKUS 50 MICROGRAMMES PAR DOSE, POUDRE POUR INHALATION [Concomitant]
  2. AIROMIR [Concomitant]
     Active Substance: ALBUTEROL SULFATE
  3. AMOXICILLINE [Suspect]
     Active Substance: AMOXICILLIN
     Indication: ERYSIPELAS
     Dosage: 3 GRAM
     Route: 048
     Dates: start: 20190817

REACTIONS (3)
  - Rash maculo-papular [Recovered/Resolved]
  - Weight increased [Recovering/Resolving]
  - Eosinophilia [Recovering/Resolving]

NARRATIVE: CASE EVENT DATE: 20190817
